FAERS Safety Report 4812072-0 (Version None)
Quarter: 2005Q4

REPORT INFORMATION
  Report Type: 
  Country: None (occurrence: None)
  Receive Date: 20051028
  Receipt Date: 20041027
  Transmission Date: 20060501
  Serious: No
  Sender: FDA-Public Use
  Company Number: US-GLAXOSMITHKLINE-A0531553A

PATIENT
  Sex: Female

DRUGS (14)
  1. ADVAIR DISKUS 100/50 [Suspect]
     Indication: ASTHMA
     Dosage: 1PUFF TWICE PER DAY
     Route: 055
     Dates: start: 20040101
  2. ADVAIR DISKUS 100/50 [Suspect]
     Dosage: 1PUFF TWICE PER DAY
     Route: 055
  3. SINGULAIR [Concomitant]
  4. LIPITOR [Concomitant]
  5. ZETIA [Concomitant]
  6. FOSINOPRIL [Concomitant]
  7. BENTYL [Concomitant]
  8. RHINOCORT [Concomitant]
     Route: 065
  9. FIBER [Concomitant]
     Route: 048
  10. CALCIUM GLUCONATE [Concomitant]
     Route: 065
  11. ASPIRIN [Concomitant]
  12. OMEGA 3 [Concomitant]
  13. ASCORBIC ACID [Concomitant]
  14. ALBUTEROL [Concomitant]

REACTIONS (2)
  - CONTUSION [None]
  - DYSPNOEA [None]
